FAERS Safety Report 7198215-5 (Version None)
Quarter: 2010Q4

REPORT INFORMATION
  Report Type: 
  Country: None (occurrence: None)
  Receive Date: 20101223
  Receipt Date: 20101223
  Transmission Date: 20110411
  Serious: Yes (Death)
  Sender: FDA-Public Use
  Company Number: None

PATIENT
  Age: 19 Year
  Sex: Male

DRUGS (2)
  1. WELLBUTRIN SR [Suspect]
     Indication: DEPRESSION
     Dosage: 1 TABLET WELLBUTRIN 2/DAY PO
     Route: 048
     Dates: start: 20100601, end: 20101123
  2. ABILIFY [Suspect]
     Indication: DEPRESSION
     Dates: start: 20100601, end: 20101123

REACTIONS (1)
  - COMPLETED SUICIDE [None]
